FAERS Safety Report 24107533 (Version 1)
Quarter: 2024Q3

REPORT INFORMATION
  Report Type: Spontaneous
  Country: CA (occurrence: CA)
  Receive Date: 20240718
  Receipt Date: 20240718
  Transmission Date: 20241017
  Serious: Yes (Other)
  Sender: NOVO NORDISK
  Company Number: None

PATIENT
  Age: 12 Year
  Sex: Female

DRUGS (3)
  1. NORDITROPIN [Suspect]
     Active Substance: SOMATROPIN
     Indication: Growth hormone deficiency
     Dosage: 700 ?G
  2. LAMOTRIGINE [Concomitant]
     Active Substance: LAMOTRIGINE
     Dosage: 1 DOSAGE FORM 1 EVERY 1 DAYS
  3. VALPROIC ACID [Concomitant]
     Active Substance: VALPROIC ACID
     Dosage: 375 MG, BID

REACTIONS (1)
  - Neoplasm malignant [Recovered/Resolved]
